FAERS Safety Report 9188651 (Version 2)
Quarter: 2013Q2

REPORT INFORMATION
  Report Type: Spontaneous
  Country: US (occurrence: US)
  Receive Date: 20130325
  Receipt Date: 20130411
  Transmission Date: 20140414
  Serious: No
  Sender: FDA-Public Use
  Company Number: US-PFIZER INC-2013093354

PATIENT
  Age: 74 Year
  Sex: Male
  Weight: 67.57 kg

DRUGS (6)
  1. LYRICA [Suspect]
     Indication: HERPES ZOSTER
     Dosage: 225 MG, 2X/DAY
     Route: 048
     Dates: start: 2012
  2. LYRICA [Suspect]
     Dosage: 200 MG DAILY
     Route: 048
  3. LYRICA [Suspect]
     Dosage: UNK, 2X/DAY
     Route: 048
  4. PRILOSEC [Concomitant]
     Indication: DYSPEPSIA
     Dosage: 20 MG, 2X/DAY
  5. ASPIRIN [Concomitant]
     Dosage: 85 MG, 1X/DAY
  6. PERCOCET [Concomitant]
     Indication: PAIN
     Dosage: 325 MG, 2X/DAY
     Dates: start: 201207

REACTIONS (1)
  - Disturbance in attention [Not Recovered/Not Resolved]
